FAERS Safety Report 8021777-2 (Version None)
Quarter: 2012Q1

REPORT INFORMATION
  Report Type: 
  Country: None (occurrence: None)
  Receive Date: 20120104
  Receipt Date: 20111229
  Transmission Date: 20120608
  Serious: Yes (Other)
  Sender: FDA-Public Use
  Company Number: US-JNJFOC-20111212798

PATIENT
  Sex: Female
  Weight: 78.93 kg

DRUGS (4)
  1. PEPCID COMPLETE [Suspect]
     Dosage: 1 CHEWABLE TABLET 1-2 TIMES A DAY
     Route: 048
  2. PEPCID COMPLETE [Suspect]
     Indication: GASTROOESOPHAGEAL REFLUX DISEASE
     Dosage: 2 CHEWABLE TABLETS, FOLLOWED BY 6, FOLLOWED BY ANOTHER 6, UP TO 18 CHEWABLE TABLETS A DAY
     Route: 048
  3. PEPCID COMPLETE [Suspect]
     Indication: HIATUS HERNIA
     Dosage: 1 CHEWABLE TABLET 1-2 TIMES A DAY
     Route: 048
  4. PEPCID COMPLETE [Suspect]
     Dosage: 2 CHEWABLE TABLETS, FOLLOWED BY 6, FOLLOWED BY ANOTHER 6, UP TO 18 CHEWABLE TABLETS A DAY
     Route: 048

REACTIONS (3)
  - DRUG INEFFECTIVE [None]
  - OVERDOSE [None]
  - INCORRECT DRUG ADMINISTRATION DURATION [None]
